FAERS Safety Report 21145362 (Version 2)
Quarter: 2022Q3

REPORT INFORMATION
  Report Type: Spontaneous
  Country: DE (occurrence: DE)
  Receive Date: 20220729
  Receipt Date: 20220802
  Transmission Date: 20221027
  Serious: Yes (Death, Life-Threatening, Hospitalization)
  Sender: FDA-Public Use
  Company Number: DE-PEI-CADR2022302430

PATIENT
  Sex: Male
  Weight: 80 kg

DRUGS (2)
  1. IPILIMUMAB [Suspect]
     Active Substance: IPILIMUMAB
     Indication: Metastatic renal cell carcinoma
     Dosage: UNBEKANNT
     Route: 048
     Dates: start: 202206
  2. NIVOLUMAB [Suspect]
     Active Substance: NIVOLUMAB
     Indication: Metastatic renal cell carcinoma
     Route: 048
     Dates: start: 202206

REACTIONS (3)
  - Rash [Fatal]
  - Skin disorder [Not Recovered/Not Resolved]
  - Blister [Fatal]

NARRATIVE: CASE EVENT DATE: 20220620
